FAERS Safety Report 7943155-4 (Version None)
Quarter: 2011Q4

REPORT INFORMATION
  Report Type: 
  Country: None (occurrence: None)
  Receive Date: 20111128
  Receipt Date: 20111118
  Transmission Date: 20120403
  Serious: Yes (Hospitalization, Other)
  Sender: FDA-Public Use
  Company Number: PHHY2010CA82846

PATIENT
  Sex: Female

DRUGS (2)
  1. NILOTINIB [Concomitant]
     Route: 048
     Dates: start: 20101125
  2. GLEEVEC [Suspect]
     Indication: CHRONIC MYELOID LEUKAEMIA
     Route: 048
     Dates: end: 20111024

REACTIONS (2)
  - HYPERSENSITIVITY [None]
  - SKIN TOXICITY [None]
